FAERS Safety Report 9301466 (Version 1)
Quarter: 2013Q2

REPORT INFORMATION
  Report Type: Report from Study
  Country: NL (occurrence: NL)
  Receive Date: 20130521
  Receipt Date: 20130521
  Transmission Date: 20140414
  Serious: Yes (Hospitalization)
  Sender: FDA-Public Use
  Company Number: NL-BAXTER-2013BAX017941

PATIENT
  Age: 53 Year
  Sex: Female

DRUGS (4)
  1. GAMMAGARD S/D 10, POEDER VOOR INFUSIEVLOEISTOF [Suspect]
     Indication: MULTIPLE SCLEROSIS
     Route: 042
     Dates: start: 20130508, end: 20130508
  2. GAMMAGARD S/D 10, POEDER VOOR INFUSIEVLOEISTOF [Suspect]
     Indication: OFF LABEL USE
     Route: 042
     Dates: start: 20130412, end: 20130412
  3. GAMMAGARD S/D 10, POEDER VOOR INFUSIEVLOEISTOF [Suspect]
     Dates: start: 20071129
  4. BACLOFEN [Concomitant]
     Indication: PRODUCT USED FOR UNKNOWN INDICATION

REACTIONS (3)
  - Foot deformity [Unknown]
  - Procedural pain [Unknown]
  - Pain [Unknown]
